FAERS Safety Report 10520875 (Version 1)
Quarter: 2014Q4

REPORT INFORMATION
  Report Type: Spontaneous
  Country: AU (occurrence: AU)
  Receive Date: 20141016
  Receipt Date: 20141016
  Transmission Date: 20150528
  Serious: Yes (Other)
  Sender: FDA-Public Use
  Company Number: PHHY2014AU133303

PATIENT
  Age: 75 Year
  Sex: Female

DRUGS (3)
  1. IRBESARTAN SANDOZ [Suspect]
     Active Substance: IRBESARTAN
     Dosage: 0.5 DF, IN MORNING
     Route: 048
  2. OXYBUTYNIN [Concomitant]
     Active Substance: OXYBUTYNIN
     Indication: PRODUCT USED FOR UNKNOWN INDICATION
     Dosage: 1 DF, HALF A TABLET MORNING AND HALF IN NIGHT
     Route: 065
  3. IRBESARTAN SANDOZ [Suspect]
     Active Substance: IRBESARTAN
     Indication: PRODUCT USED FOR UNKNOWN INDICATION
     Route: 048

REACTIONS (4)
  - Dizziness [Unknown]
  - Influenza [Unknown]
  - Fall [Unknown]
  - Constipation [Unknown]
